FAERS Safety Report 6657504-0 (Version None)
Quarter: 2010Q1

REPORT INFORMATION
  Report Type: 
  Country: None (occurrence: None)
  Receive Date: 20100330
  Receipt Date: 20100326
  Transmission Date: 20100710
  Serious: Yes (Death, Hospitalization)
  Sender: FDA-Public Use
  Company Number: PHHO2010IN02956

PATIENT
  Sex: Male
  Weight: 72 kg

DRUGS (3)
  1. ALISKIREN ALI+TAB+CF [Suspect]
     Indication: CARDIAC FAILURE
     Dosage: UNK
     Route: 048
     Dates: start: 20100127, end: 20100221
  2. COMPARATOR ENALAPRIL [Suspect]
  3. ALISKIREN [Suspect]
     Dosage: UNK
     Dates: start: 20091127

REACTIONS (11)
  - ASTHENIA [None]
  - ATRIOVENTRICULAR BLOCK [None]
  - DISEASE PROGRESSION [None]
  - DIZZINESS [None]
  - FALL [None]
  - FEELING ABNORMAL [None]
  - HYPOTENSION [None]
  - PAIN [None]
  - PERIPHERAL COLDNESS [None]
  - SYNCOPE [None]
  - VOMITING [None]
